FAERS Safety Report 4508979-4 (Version None)
Quarter: 2004Q4

REPORT INFORMATION
  Report Type: 
  Country: None (occurrence: None)
  Receive Date: 20041122
  Receipt Date: 20041122
  Transmission Date: 20050328
  Serious: No
  Sender: FDA-Public Use
  Company Number: None

PATIENT
  Age: 50 Year
  Sex: Female
  Weight: 58.0604 kg

DRUGS (1)
  1. VIOXX [Suspect]

REACTIONS (2)
  - CHEST PAIN [None]
  - CONDITION AGGRAVATED [None]
